FAERS Safety Report 9306969 (Version 1)
Quarter: 2013Q2

REPORT INFORMATION
  Report Type: Spontaneous
  Country: US (occurrence: US)
  Receive Date: 20130523
  Receipt Date: 20130523
  Transmission Date: 20140414
  Serious: No
  Sender: FDA-Public Use
  Company Number: US-AMGEN-USASP2013021344

PATIENT
  Age: 89 Year
  Sex: Female

DRUGS (2)
  1. ARANESP [Suspect]
     Indication: NEPHROGENIC ANAEMIA
     Dosage: 500 MUG, QMO
  2. ANTIHYPERTENSIVES [Concomitant]

REACTIONS (2)
  - Fatigue [Unknown]
  - Haemoglobin abnormal [Unknown]
